FAERS Safety Report 7579006-X (Version None)
Quarter: 2011Q2

REPORT INFORMATION
  Report Type: 
  Country: None (occurrence: None)
  Receive Date: 20110628
  Receipt Date: 20110617
  Transmission Date: 20111010
  Serious: Yes (Hospitalization)
  Sender: FDA-Public Use
  Company Number: PHHY2011US55752

PATIENT
  Age: 35 Year
  Sex: Male

DRUGS (4)
  1. HYDROMORPHONE HCL [Interacting]
     Indication: ARTHRALGIA
     Dosage: 20 MG,
     Route: 042
  2. DEXMEDETOMIDINE [Interacting]
  3. MODAFINIL [Concomitant]
  4. METHADONE HCL [Suspect]
     Indication: ARTHRALGIA
     Dosage: 400 MG, DAILY
     Route: 048

REACTIONS (4)
  - MYOCLONUS [None]
  - SLEEP APNOEA SYNDROME [None]
  - POTENTIATING DRUG INTERACTION [None]
  - HYPERAESTHESIA [None]
